FAERS Safety Report 7973763-6 (Version None)
Quarter: 2011Q4

REPORT INFORMATION
  Report Type: 
  Country: None (occurrence: None)
  Receive Date: 20111213
  Receipt Date: 20111205
  Transmission Date: 20120403
  Serious: Yes (Hospitalization)
  Sender: FDA-Public Use
  Company Number: PHHY2011FR107587

PATIENT
  Sex: Male

DRUGS (4)
  1. ENBREL [Suspect]
     Route: 058
     Dates: start: 20110204, end: 20110411
  2. SULFASALAZINE [Suspect]
     Dates: end: 20110601
  3. VOLTAREN [Suspect]
     Dosage: 75-50-75 MG DAILY
  4. RIFAMPIN AND ISONIAZID [Suspect]
     Indication: PROPHYLAXIS
     Dates: start: 20110115, end: 20110406

REACTIONS (6)
  - HAIRY CELL LEUKAEMIA [None]
  - BICYTOPENIA [None]
  - NEUTROPENIA [None]
  - PLATELET COUNT DECREASED [None]
  - FIBROSIS [None]
  - BONE MARROW LEUKAEMIC CELL INFILTRATION [None]
